FAERS Safety Report 7608068-6 (Version None)
Quarter: 2011Q3

REPORT INFORMATION
  Report Type: 
  Country: None (occurrence: None)
  Receive Date: 20110706
  Receipt Date: 20110622
  Transmission Date: 20111222
  Serious: Yes (Other)
  Sender: FDA-Public Use
  Company Number: USA/USA/11/0018878

PATIENT
  Age: 81 Year
  Sex: Female

DRUGS (2)
  1. DIVALPROEX SODIUM [Suspect]
     Indication: COMPLEX PARTIAL SEIZURES
  2. LEVETIRACETAM [Suspect]
     Indication: COMPLEX PARTIAL SEIZURES

REACTIONS (3)
  - CONVULSION [None]
  - PRODUCT SUBSTITUTION ISSUE [None]
  - ENCEPHALOPATHY [None]
